FAERS Safety Report 9324467 (Version 1)
Quarter: 2013Q2

REPORT INFORMATION
  Report Type: Spontaneous
  Country: US (occurrence: US)
  Receive Date: 20130603
  Receipt Date: 20130603
  Transmission Date: 20140414
  Serious: Yes (Death)
  Sender: FDA-Public Use
  Company Number: US-INCYTE CORPORATION-2013IN000296

PATIENT
  Age: 44 Year
  Sex: Male

DRUGS (1)
  1. JAKAFI [Suspect]
     Indication: MYELOFIBROSIS
     Dosage: 15 MG 2 BID
     Route: 048
     Dates: start: 20130104

REACTIONS (5)
  - Death [Fatal]
  - Splenomegaly [Unknown]
  - Fluid retention [Unknown]
  - Testicular swelling [Unknown]
  - Testicular pain [Unknown]
